FAERS Safety Report 19358518 (Version 1)
Quarter: 2021Q2

REPORT INFORMATION
  Report Type: Spontaneous
  Country: US (occurrence: US)
  Receive Date: 20210602
  Receipt Date: 20210602
  Transmission Date: 20210717
  Serious: Yes (Hospitalization)
  Sender: FDA-Public Use
  Company Number: US-ELI_LILLY_AND_COMPANY-US202105010873

PATIENT
  Age: 60 Year
  Sex: Female

DRUGS (4)
  1. INSULIN LISPRO LILLY 25LIS75NPL KWIKPEN/MIRIOPEN [Suspect]
     Active Substance: INSULIN LISPRO
     Dosage: 15 U, BID
     Route: 058
  2. INSULIN LISPRO LILLY 25LIS75NPL KWIKPEN/MIRIOPEN [Suspect]
     Active Substance: INSULIN LISPRO
     Indication: DIABETES MELLITUS
     Dosage: 15 U, BID
     Route: 058
     Dates: start: 201903
  3. INSULIN LISPRO LILLY 25LIS75NPL KWIKPEN/MIRIOPEN [Suspect]
     Active Substance: INSULIN LISPRO
     Indication: DIABETES MELLITUS
     Dosage: 15 U, BID
     Route: 058
     Dates: start: 201903
  4. INSULIN LISPRO LILLY 25LIS75NPL KWIKPEN/MIRIOPEN [Suspect]
     Active Substance: INSULIN LISPRO
     Dosage: 15 U, BID
     Route: 058

REACTIONS (8)
  - Cataract [Recovering/Resolving]
  - Ankle fracture [Not Recovered/Not Resolved]
  - Loss of consciousness [Unknown]
  - Mobility decreased [Unknown]
  - Blood glucose increased [Recovering/Resolving]
  - Product storage error [Unknown]
  - Blood glucose decreased [Not Recovered/Not Resolved]
  - Pain in extremity [Recovering/Resolving]

NARRATIVE: CASE EVENT DATE: 202004
